FAERS Safety Report 13466338 (Version 1)
Quarter: 2017Q2

REPORT INFORMATION
  Report Type: Spontaneous
  Country: US (occurrence: US)
  Receive Date: 20170421
  Receipt Date: 20170421
  Transmission Date: 20170830
  Serious: No
  Sender: FDA-Public Use
  Company Number: US-B.I. PHARMACEUTICALS,INC./RIDGEFIELD-2017-BI-022379

PATIENT
  Age: 27 Year
  Sex: Male
  Weight: 25.4 kg

DRUGS (27)
  1. RISPERIDONE. [Concomitant]
     Active Substance: RISPERIDONE
     Indication: INTENTIONAL SELF-INJURY
  2. GABAPENTIN. [Concomitant]
     Active Substance: GABAPENTIN
     Indication: INTENTIONAL SELF-INJURY
  3. GABAPENTIN. [Concomitant]
     Active Substance: GABAPENTIN
  4. BUSPIRONE [Concomitant]
     Active Substance: BUSPIRONE HYDROCHLORIDE
     Indication: INTENTIONAL SELF-INJURY
  5. ACYCLOVIR. [Concomitant]
     Active Substance: ACYCLOVIR
     Indication: HERPES DERMATITIS
     Route: 065
  6. CATAPRES [Suspect]
     Active Substance: CLONIDINE HYDROCHLORIDE
     Indication: PRODUCT USED FOR UNKNOWN INDICATION
  7. VANCOMYCIN [Concomitant]
     Active Substance: VANCOMYCIN
     Indication: PNEUMONIA ASPIRATION
     Route: 065
  8. OXYCODONE [Concomitant]
     Active Substance: OXYCODONE
     Indication: ILIUM FRACTURE
  9. FENTANYL. [Concomitant]
     Active Substance: FENTANYL
  10. ACYCLOVIR. [Concomitant]
     Active Substance: ACYCLOVIR
     Indication: HYPERKERATOSIS
  11. NALOXONE [Concomitant]
     Active Substance: NALOXONE
     Dosage: 3 SEPARATE DAYS
     Route: 065
  12. BUSPIRONE [Concomitant]
     Active Substance: BUSPIRONE HYDROCHLORIDE
  13. LORAZEPAM. [Concomitant]
     Active Substance: LORAZEPAM
  14. OXYCODONE [Concomitant]
     Active Substance: OXYCODONE
  15. NALOXONE [Concomitant]
     Active Substance: NALOXONE
     Indication: OXYGEN SATURATION ABNORMAL
     Dosage: 3 SEPARATE DAYS
     Route: 065
  16. VALPROIC ACID. [Concomitant]
     Active Substance: VALPROIC ACID
     Indication: PRODUCT USED FOR UNKNOWN INDICATION
     Dosage: STRENGTH: 250 MG/5 ML
  17. LORAZEPAM. [Concomitant]
     Active Substance: LORAZEPAM
     Indication: AGITATION
     Dosage: STRENGTH: 2MG/ML
  18. HALOPERIDOL. [Concomitant]
     Active Substance: HALOPERIDOL
     Indication: PRODUCT USED FOR UNKNOWN INDICATION
     Dosage: RECEIVED UP TO 30 MG IN 1 DAY
     Route: 042
  19. LORAZEPAM. [Concomitant]
     Active Substance: LORAZEPAM
     Route: 042
  20. PIPERACILLIN AND TAZOBACTAM [Concomitant]
     Active Substance: PIPERACILLIN SODIUM\TAZOBACTAM SODIUM
     Indication: PNEUMONIA ASPIRATION
     Route: 065
  21. NALOXONE [Concomitant]
     Active Substance: NALOXONE
     Indication: UNRESPONSIVE TO STIMULI
     Dosage: 3 SEPARATE DAYS
     Route: 065
  22. OLANZAPINE. [Concomitant]
     Active Substance: OLANZAPINE
     Indication: PRODUCT USED FOR UNKNOWN INDICATION
     Dosage: UP TO 40 MG IN 1 DAY
  23. FLUOXETINE [Concomitant]
     Active Substance: FLUOXETINE HYDROCHLORIDE
     Indication: INTENTIONAL SELF-INJURY
  24. OXYCODONE [Concomitant]
     Active Substance: OXYCODONE
  25. BUSPIRONE [Concomitant]
     Active Substance: BUSPIRONE HYDROCHLORIDE
  26. FENTANYL. [Concomitant]
     Active Substance: FENTANYL
     Indication: ILIUM FRACTURE
     Route: 042
  27. CHLORPROMAZINE. [Concomitant]
     Active Substance: CHLORPROMAZINE
     Indication: PRODUCT USED FOR UNKNOWN INDICATION
     Dosage: UP TO 350 MG IN 1 DAY
     Route: 042

REACTIONS (3)
  - Hypotension [Unknown]
  - Therapeutic response decreased [Unknown]
  - Agitation [Unknown]
